FAERS Safety Report 24248296 (Version 1)
Quarter: 2024Q3

REPORT INFORMATION
  Report Type: Spontaneous
  Country: US (occurrence: US)
  Receive Date: 20240826
  Receipt Date: 20240826
  Transmission Date: 20241017
  Serious: No
  Sender: CELLTRION
  Company Number: US-CELLTRION INC.-2024US016579

PATIENT

DRUGS (13)
  1. YUFLYMA [Suspect]
     Active Substance: ADALIMUMAB-AATY
     Indication: Rheumatoid arthritis
     Dosage: INJECT ONE PEN SUBCUTANEOUSLY EVERY 2 WEEKS FOR RHEUMATOID ARTHRITIS
     Route: 058
     Dates: start: 20240326
  2. POTASSIUM [Concomitant]
     Active Substance: POTASSIUM
     Dosage: 40 MG
  3. HYDROXYCHLOROQUINE [Concomitant]
     Active Substance: HYDROXYCHLOROQUINE
     Dosage: 200 MG
  4. FUROSEMIDE [Concomitant]
     Active Substance: FUROSEMIDE
     Dosage: 20 MG- 40 MG ^DEPENDING ON FLUIDS^
  5. METOPROLOL [Concomitant]
     Active Substance: METOPROLOL
     Dosage: 1/2 TABLET OF METOPROLOL 2.5 MG
  6. VALSARTAN [Concomitant]
     Active Substance: VALSARTAN
     Dosage: 1/2 TABLET VALSARTAN 40 MG
  7. LEFLUNOMIDE [Concomitant]
     Active Substance: LEFLUNOMIDE
     Dosage: 10 MG
  8. PROLIA [Concomitant]
     Active Substance: DENOSUMAB
     Dosage: PROLIA INJECTIONS EVERY 6 MONTHS
  9. HERBALS\TURMERIC [Concomitant]
     Active Substance: HERBALS\TURMERIC
     Dosage: UNK
  10. MAGNESIUM [Concomitant]
     Active Substance: MAGNESIUM
     Dosage: UNK
  11. VITAMIN D NOS [Concomitant]
     Active Substance: CHOLECALCIFEROL\ERGOCALCIFEROL
     Dosage: UNK
  12. VITAMIN B [Concomitant]
     Active Substance: VITAMIN B
     Dosage: UNK
  13. PROBIOTICS NOS [Concomitant]
     Active Substance: PROBIOTICS NOS
     Dosage: UNK

REACTIONS (2)
  - Device malfunction [Not Recovered/Not Resolved]
  - Drug dose omission by device [Not Recovered/Not Resolved]

NARRATIVE: CASE EVENT DATE: 20240702
